FAERS Safety Report 15402353 (Version 1)
Quarter: 2018Q3

REPORT INFORMATION
  Report Type: Spontaneous
  Country: AU (occurrence: AU)
  Receive Date: 20180919
  Receipt Date: 20180919
  Transmission Date: 20181010
  Serious: Yes (Other)
  Sender: FDA-Public Use
  Company Number: AU-IGSA-SR10006922

PATIENT
  Age: 41 Year
  Sex: Female

DRUGS (2)
  1. FLEBOGAMMA DIF [Suspect]
     Active Substance: HUMAN IMMUNOGLOBULIN G
     Indication: GUILLAIN-BARRE SYNDROME
     Dosage: 160 G, UNK
     Route: 042
     Dates: start: 201806
  2. FLEBOGAMMA DIF [Suspect]
     Active Substance: HUMAN IMMUNOGLOBULIN G
     Dosage: 120 G, UNK
     Route: 042
     Dates: start: 201808

REACTIONS (1)
  - Pleocytosis [Unknown]

NARRATIVE: CASE EVENT DATE: 201808
